FAERS Safety Report 6500553-3 (Version None)
Quarter: 2009Q4

REPORT INFORMATION
  Report Type: 
  Country: None (occurrence: None)
  Receive Date: 20091216
  Receipt Date: 20081107
  Transmission Date: 20100525
  Serious: No
  Sender: FDA-Public Use
  Company Number: A0755537A

PATIENT
  Age: 17 Year
  Sex: Male

DRUGS (5)
  1. COMMIT [Suspect]
     Dates: start: 20081020
  2. FOCALIN [Concomitant]
  3. DOXYCYCLINE [Concomitant]
  4. WELLBUTRIN [Concomitant]
  5. CLONIDINE [Concomitant]

REACTIONS (1)
  - DECREASED APPETITE [None]
